FAERS Safety Report 4813042-9 (Version None)
Quarter: 2005Q4

REPORT INFORMATION
  Report Type: 
  Country: None (occurrence: None)
  Receive Date: 20051026
  Receipt Date: 20051007
  Transmission Date: 20060501
  Serious: Yes (Hospitalization)
  Sender: FDA-Public Use
  Company Number: TRP_0628_2005

PATIENT
  Age: 49 Year
  Sex: Male
  Weight: 108.8633 kg

DRUGS (10)
  1. RIBASPHERE [Suspect]
     Indication: HEPATITIS C
     Dosage: 400 MG BID PO
     Route: 048
     Dates: start: 20050729
  2. PEG-INTRON [Suspect]
     Indication: HEPATITIS C
     Dosage: 150 MG QWK SC
     Route: 058
     Dates: start: 20050729
  3. OXYCONTIN [Suspect]
     Dosage: 40 MG Q12HR PO
     Route: 048
  4. EFFEXOR XR [Concomitant]
  5. ELAVIL [Concomitant]
  6. KLONOPIN [Concomitant]
  7. NEURONTIN [Concomitant]
  8. ACETAMINOPHEN AND OXYCODONE HCL [Concomitant]
  9. RESTORIL [Concomitant]
  10. ACETAMINOPHEN AND OXYCODONE HCL [Concomitant]

REACTIONS (6)
  - ACCIDENTAL OVERDOSE [None]
  - ANAEMIA [None]
  - BLOOD PRESSURE ABNORMAL [None]
  - FALL [None]
  - FOOT FRACTURE [None]
  - ORAL INTAKE REDUCED [None]
